FAERS Safety Report 24125622 (Version 1)
Quarter: 2024Q3

REPORT INFORMATION
  Report Type: Spontaneous
  Country: FR (occurrence: FR)
  Receive Date: 20240723
  Receipt Date: 20240723
  Transmission Date: 20241017
  Serious: Yes (Hospitalization)
  Sender: CHEPLAPHARM
  Company Number: None

PATIENT
  Age: 78 Year
  Sex: Female

DRUGS (38)
  1. PREDNISONE [Suspect]
     Active Substance: PREDNISONE
     Indication: Rheumatoid arthritis
     Dosage: 1 MG 3 TABLETS IN THE MORNING ?DAILY DOSE: 3 MILLIGRAM
     Route: 048
     Dates: start: 2004
  2. OMEPRAZOLE [Suspect]
     Active Substance: OMEPRAZOLE
     Dosage: IN THE MORNING ?DAILY DOSE: 20 MILLIGRAM
     Dates: end: 2023
  3. GANCICLOVIR [Suspect]
     Active Substance: GANCICLOVIR
     Indication: Cytomegalovirus chorioretinitis
     Route: 048
     Dates: start: 20230929, end: 20231004
  4. VALGANCICLOVIR [Suspect]
     Active Substance: VALGANCICLOVIR
     Indication: Cytomegalovirus chorioretinitis
     Route: 048
     Dates: start: 20230929, end: 20231004
  5. TOCILIZUMAB [Suspect]
     Active Substance: TOCILIZUMAB
     Indication: Rheumatoid arthritis
     Route: 058
     Dates: start: 202301, end: 2023
  6. METHOTREXATE [Suspect]
     Active Substance: METHOTREXATE
     Indication: Rheumatoid arthritis
     Route: 058
     Dates: start: 2008, end: 202312
  7. ARAVA [Concomitant]
     Active Substance: LEFLUNOMIDE
     Dates: start: 2005, end: 2008
  8. FILGOTINIB [Concomitant]
     Active Substance: FILGOTINIB
     Dosage: FOR 4 MONTHS IN 2022
  9. ABATACEPT [Concomitant]
     Active Substance: ABATACEPT
     Dates: start: 202206, end: 202207
  10. VERAPAMIL [Concomitant]
     Active Substance: VERAPAMIL HYDROCHLORIDE
     Dosage: 1 TABLET MORNING AND EVENING ?DAILY DOSE: 2 DOSAGE FORM
     Dates: end: 2023
  11. FOLIC ACID [Concomitant]
     Active Substance: FOLIC ACID
     Dosage: 5 MG 2 TABLETS ON WEDNESDAY
     Dates: end: 2023
  12. CALCIUM CARBONATE\CHOLECALCIFEROL [Concomitant]
     Active Substance: CALCIUM CARBONATE\CHOLECALCIFEROL
     Dosage: 1 TABLET MORNING AND EVENING ?DAILY DOSE: 2 DOSAGE FORM
     Dates: end: 2023
  13. ACETAMINOPHEN [Concomitant]
     Active Substance: ACETAMINOPHEN
     Dosage: 500 MG 3/DAY IF PAIN
     Dates: end: 2023
  14. ROSUVASTATIN [Concomitant]
     Active Substance: ROSUVASTATIN
     Dosage: 1 TABLET IN THE EVENING ?DAILY DOSE: 10 MILLIGRAM
     Dates: end: 2023
  15. NITROGLYCERIN [Concomitant]
     Active Substance: NITROGLYCERIN
     Dosage: 10 MG/24 H BEFORE MORNING?DAILY DOSE: 10 MILLIGRAM
     Dates: end: 2023
  16. TIOTROPIUM [Concomitant]
     Active Substance: TIOTROPIUM
     Dosage: 2.5MCG/DOSE 2 PUFFS IN THE MORNING
     Dates: end: 2023
  17. MONTELUKAST [Concomitant]
     Active Substance: MONTELUKAST SODIUM
     Dosage: 10 MG 1 TABLET IN THE EVENING ?DAILY DOSE: 10 MILLIGRAM
     Dates: end: 2023
  18. CETIRIZINE [Concomitant]
     Active Substance: CETIRIZINE HYDROCHLORIDE
     Dosage: 10 MG 1 TABLET MORNING ?DAILY DOSE: 10 MILLIGRAM
     Dates: end: 2023
  19. Pilocarpine chlorhydrate [Concomitant]
     Dosage: 6 MG 3 X DAILY
     Dates: end: 2023
  20. APIXABAN [Concomitant]
     Active Substance: APIXABAN
     Dosage: 5 MG 1 TABLET MORNING AND EVENING ?DAILY DOSE: 2 DOSAGE FORM
     Dates: end: 2023
  21. CORN OIL, OXIDIZED [Concomitant]
     Active Substance: CORN OIL, OXIDIZED
     Dosage: FL 40 ML
     Dates: end: 2023
  22. INNOVAIR [Concomitant]
     Active Substance: BECLOMETHASONE DIPROPIONATE\FORMOTEROL
     Dosage: 100/6: 2 INHALATIONS MORNING AND EVENING
     Route: 055
     Dates: end: 2023
  23. CLINDAMYCIN [Concomitant]
     Active Substance: CLINDAMYCIN
     Indication: Eye infection toxoplasmal
     Dates: start: 20231004
  24. CLINDAMYCIN [Concomitant]
     Active Substance: CLINDAMYCIN
     Indication: Eye infection toxoplasmal
     Dates: start: 20231010
  25. CLINDAMYCIN [Concomitant]
     Active Substance: CLINDAMYCIN
     Indication: Eye infection toxoplasmal
     Dates: start: 20231023
  26. CLINDAMYCIN [Concomitant]
     Active Substance: CLINDAMYCIN
     Indication: Eye infection toxoplasmal
     Dosage: FOR WEAKLY POSITIVE PCR
     Dates: start: 20240314
  27. Celestene [Concomitant]
     Dates: start: 20231004
  28. Celestene [Concomitant]
     Dates: start: 20231010
  29. Celestene [Concomitant]
     Dates: start: 20231023
  30. Malocide [Concomitant]
     Dates: start: 20231004, end: 20231116
  31. ZITHROMAX [Concomitant]
     Active Substance: AZITHROMYCIN DIHYDRATE
     Dates: start: 20231004, end: 20231116
  32. LEUCOVORIN CALCIUM [Concomitant]
     Active Substance: LEUCOVORIN CALCIUM
     Dates: start: 20231004, end: 20231116
  33. BACTRIM [Concomitant]
     Active Substance: SULFAMETHOXAZOLE\TRIMETHOPRIM
     Indication: Prophylaxis
     Dosage: LONG-TERM PROPHYLAXIS.
     Dates: start: 20231116, end: 20231228
  34. BACTRIM [Concomitant]
     Active Substance: SULFAMETHOXAZOLE\TRIMETHOPRIM
     Indication: Eye infection toxoplasmal
     Dosage: LONG-TERM PROPHYLAXIS.
     Dates: start: 20231116, end: 20231228
  35. BACTRIM [Concomitant]
     Active Substance: SULFAMETHOXAZOLE\TRIMETHOPRIM
     Indication: Prophylaxis
     Dosage: FOR WEAKLY POSITIVE PCR
     Dates: start: 20240314
  36. BACTRIM [Concomitant]
     Active Substance: SULFAMETHOXAZOLE\TRIMETHOPRIM
     Indication: Eye infection toxoplasmal
     Dosage: FOR WEAKLY POSITIVE PCR
     Dates: start: 20240314
  37. DEXAMETHASONE [Concomitant]
     Active Substance: DEXAMETHASONE
     Indication: COVID-19
     Dates: start: 20231205, end: 20231207
  38. VALACYCLOVIR HYDROCHLORIDE [Concomitant]
     Active Substance: VALACYCLOVIR HYDROCHLORIDE
     Indication: Genital herpes
     Dosage: BID?DAILY DOSE: 1000 MILLIGRAM
     Dates: start: 20231212, end: 20231217

REACTIONS (1)
  - Alveolar proteinosis [Not Recovered/Not Resolved]

NARRATIVE: CASE EVENT DATE: 20231101
